FAERS Safety Report 8921804 (Version 1)
Quarter: 2012Q4

REPORT INFORMATION
  Report Type: 
  Country: IT (occurrence: IT)
  Receive Date: 20121121
  Receipt Date: 20121121
  Transmission Date: 20130627
  Serious: Yes (Other)
  Sender: FDA-Public Use
  Company Number: IT-BAYER-2012-122069

PATIENT
  Age: 36 Year
  Sex: Female

DRUGS (17)
  1. ACETYLSALICYLIC ACID({=100 MG) [Suspect]
     Dosage: Daily dose 75 mg
  2. ACETYLSALICYLIC ACID({=100 MG) [Suspect]
     Dosage: Daily dose 75 mg
  3. TELMISARTAN [Suspect]
     Dosage: Daily dose 20 mg
  4. CLOPIDOGREL [Suspect]
     Dosage: Daily dose 75 mg
  5. CLOPIDOGREL [Suspect]
     Dosage: Daily dose 75 mg
  6. ALFAMETILDOPA [Suspect]
     Dosage: Daily dose 1500 mg
  7. METOPROLOL [Concomitant]
     Dosage: Daily dose 100 mg
  8. ROSUVASTATIN [Concomitant]
     Dosage: Daily dose 20 mg
  9. THIOPENTAL SODIUM [Concomitant]
     Indication: GENERAL ANESTHESIA
     Dosage: 2.5 mg/kg, UNK
  10. REMIFENTANIL [Concomitant]
     Indication: GENERAL ANESTHESIA
     Dosage: 6 ng/mL, UNK
  11. REMIFENTANIL [Concomitant]
     Indication: GENERAL ANESTHESIA
     Dosage: 3 ng/mL, UNK
  12. ROCURONIUM [Concomitant]
     Dosage: 1 mg/kg, UNK
  13. OXYGEN [Concomitant]
  14. SEVOFLURANE [Concomitant]
  15. CRYSTALLOIDS [Concomitant]
     Dosage: UNK
  16. MORPHINE [Concomitant]
     Dosage: 5 mg, ONCE
  17. MORPHINE [Concomitant]

REACTIONS (8)
  - Exposure during pregnancy [None]
  - Hypertensive crisis [None]
  - Myocardial ischaemia [None]
  - Uterine hypotonus [None]
  - Maternal exposure during pregnancy [None]
  - Pregnancy [None]
  - Myocardial infarction [None]
  - Caesarean section [None]
